FAERS Safety Report 6637624-7 (Version None)
Quarter: 2010Q1

REPORT INFORMATION
  Report Type: 
  Country: None (occurrence: None)
  Receive Date: 20100312
  Receipt Date: 20100303
  Transmission Date: 20100710
  Serious: Yes (Other)
  Sender: FDA-Public Use
  Company Number: CIP10000015

PATIENT
  Age: 47 Year
  Sex: Female

DRUGS (5)
  1. ASACOL [Suspect]
     Indication: COLITIS ULCERATIVE
     Dosage: 1200 MG TWICE DAILY, ORAL
     Route: 048
     Dates: start: 20091001
  2. CONTRACEPTIVES NOS [Concomitant]
  3. ALL OTHER THERAPEUTIC PRODUCTS [Concomitant]
  4. MULTIVITAMIN [Concomitant]
  5. FISH OIL (FISH OIL) [Concomitant]

REACTIONS (3)
  - GRAND MAL CONVULSION [None]
  - INAPPROPRIATE SCHEDULE OF DRUG ADMINISTRATION [None]
  - TONGUE BITING [None]
